FAERS Safety Report 25749497 (Version 1)
Quarter: 2025Q3

REPORT INFORMATION
  Report Type: Spontaneous
  Country: US (occurrence: US)
  Receive Date: 20250902
  Receipt Date: 20250902
  Transmission Date: 20251020
  Serious: Yes (Other)
  Sender: RANBAXY
  Company Number: US-SUN PHARMACEUTICAL INDUSTRIES LTD-2025R1-524918

PATIENT
  Sex: Female

DRUGS (5)
  1. DIPHENHYDRAMINE [Suspect]
     Active Substance: DIPHENHYDRAMINE
     Indication: Insomnia
     Route: 065
  2. TRAZODONE [Suspect]
     Active Substance: TRAZODONE HYDROCHLORIDE
     Indication: Insomnia
     Route: 065
  3. MIRTAZAPINE [Suspect]
     Active Substance: MIRTAZAPINE
     Indication: Insomnia
     Route: 065
  4. MELATONIN [Suspect]
     Active Substance: MELATONIN
     Indication: Insomnia
     Route: 065
  5. DOXYLAMINE [Suspect]
     Active Substance: DOXYLAMINE
     Indication: Insomnia
     Route: 065

REACTIONS (1)
  - Treatment failure [Unknown]
